FAERS Safety Report 5429914-0 (Version None)
Quarter: 2007Q3

REPORT INFORMATION
  Report Type: 
  Country: None (occurrence: None)
  Receive Date: 20070829
  Receipt Date: 20070817
  Transmission Date: 20080115
  Serious: Yes (Hospitalization)
  Sender: FDA-Public Use
  Company Number: PE-PFIZER INC-2007056321

PATIENT
  Age: 10 Year
  Sex: Male

DRUGS (2)
  1. ZITHROMAX [Suspect]
     Indication: BRONCHITIS
     Route: 048
     Dates: start: 20070703, end: 20070704
  2. RANITIDINE [Concomitant]
     Route: 048

REACTIONS (2)
  - GASTRITIS [None]
  - MYCOPLASMA INFECTION [None]
